FAERS Safety Report 22166314 (Version 1)
Quarter: 2023Q2

REPORT INFORMATION
  Report Type: Spontaneous
  Country: IT (occurrence: IT)
  Receive Date: 20230403
  Receipt Date: 20230403
  Transmission Date: 20230722
  Serious: Yes (Other)
  Sender: FDA-Public Use
  Company Number: None

PATIENT
  Age: 53 Year
  Sex: Male
  Weight: 85 kg

DRUGS (3)
  1. BEVACIZUMAB [Suspect]
     Active Substance: BEVACIZUMAB
     Indication: Colon cancer
     Dosage: 510 MG
     Route: 042
     Dates: start: 20220610, end: 20220708
  2. CAPECITABINE [Suspect]
     Active Substance: CAPECITABINE
     Indication: Colon cancer
     Dosage: 500 MG
     Route: 048
     Dates: start: 20220610, end: 20220708
  3. ALLOPURINOL [Concomitant]
     Active Substance: ALLOPURINOL
     Dosage: UNK

REACTIONS (1)
  - Hypertriglyceridaemia [Not Recovered/Not Resolved]

NARRATIVE: CASE EVENT DATE: 20220629
